FAERS Safety Report 7732815-6 (Version None)
Quarter: 2011Q3

REPORT INFORMATION
  Report Type: 
  Country: None (occurrence: None)
  Receive Date: 20110817
  Receipt Date: 20100611
  Transmission Date: 20111222
  Serious: Yes (Hospitalization)
  Sender: FDA-Public Use
  Company Number: 20073422

PATIENT
  Sex: Male

DRUGS (4)
  1. BUPIVACAINE HCL [Concomitant]
  2. MORPHINE [Concomitant]
  3. CLONIDINE [Concomitant]
  4. LIORESAL [Suspect]
     Indication: MUSCLE SPASTICITY
     Dosage: DAILY, INTRATHECAL
     Route: 037

REACTIONS (3)
  - PAIN [None]
  - DRUG INEFFECTIVE [None]
  - INTRACRANIAL HYPOTENSION [None]
